FAERS Safety Report 22199760 (Version 1)
Quarter: 2023Q2

REPORT INFORMATION
  Report Type: Spontaneous
  Country: DE (occurrence: DE)
  Receive Date: 20230412
  Receipt Date: 20230412
  Transmission Date: 20230722
  Serious: Yes (Other)
  Sender: FDA-Public Use
  Company Number: DE-EMBRYOTOX-202107754

PATIENT
  Age: 1 Day
  Sex: Female
  Weight: 2.7 kg

DRUGS (5)
  1. METOPROLOL [Suspect]
     Active Substance: METOPROLOL
     Indication: Product used for unknown indication
     Dosage: 50 [MG/D ] 0. - 40.4. GESTATIONAL WEEK
     Route: 064
     Dates: start: 20201222, end: 20211002
  2. Serroflo Dosieraerosol [Concomitant]
     Indication: Product used for unknown indication
     Dosage: 50 [MICROG/D ] / 500 [MICROG/D ] 2 SEPARATED DOSES
     Route: 064
     Dates: start: 20201222, end: 20211002
  3. COMIRNATY [Concomitant]
     Active Substance: TOZINAMERAN
     Indication: Product used for unknown indication
     Route: 064
     Dates: start: 20210711, end: 20210711
  4. COMIRNATY [Concomitant]
     Active Substance: TOZINAMERAN
     Indication: COVID-19 immunisation
     Dates: start: 20210808, end: 20210808
  5. CYTOTEC [Concomitant]
     Active Substance: MISOPROSTOL
     Indication: Product used for unknown indication
     Route: 064

REACTIONS (2)
  - Small for dates baby [Unknown]
  - Foetal exposure during pregnancy [Unknown]

NARRATIVE: CASE EVENT DATE: 20211001
